FAERS Safety Report 26081158 (Version 1)
Quarter: 2025Q4

REPORT INFORMATION
  Report Type: Report from Study
  Country: US (occurrence: US)
  Receive Date: 20251124
  Receipt Date: 20251124
  Transmission Date: 20260118
  Serious: Yes (Other)
  Sender: TAKEDA
  Company Number: US-TAKEDA-2025TUS104227

PATIENT
  Age: 82 Year
  Sex: Male

DRUGS (1)
  1. PRUCALOPRIDE [Suspect]
     Active Substance: PRUCALOPRIDE
     Indication: Product used for unknown indication
     Dosage: UNK

REACTIONS (1)
  - Parkinson^s disease [Unknown]
